FAERS Safety Report 5492463-8 (Version None)
Quarter: 2007Q4

REPORT INFORMATION
  Report Type: 
  Country: None (occurrence: None)
  Receive Date: 20071015
  Receipt Date: 20070726
  Transmission Date: 20080405
  Serious: No
  Sender: FDA-Public Use
  Company Number: 2007SP002659

PATIENT
  Age: 52 Year
  Sex: Female
  Weight: 63.5036 kg

DRUGS (3)
  1. LUNESTA [Suspect]
     Indication: SLEEP DISORDER
     Dosage: 3 MG; ORAL
     Route: 048
     Dates: start: 20070725
  2. LORAZEPAM [Concomitant]
  3. DYAZIDE [Concomitant]

REACTIONS (1)
  - DYSGEUSIA [None]
